FAERS Safety Report 7584467-6 (Version None)
Quarter: 2011Q2

REPORT INFORMATION
  Report Type: 
  Country: None (occurrence: None)
  Receive Date: 20110630
  Receipt Date: 20110620
  Transmission Date: 20111010
  Serious: Yes (Hospitalization, Other)
  Sender: FDA-Public Use
  Company Number: US-ELI_LILLY_AND_COMPANY-US201106005932

PATIENT
  Sex: Male
  Weight: 83.9 kg

DRUGS (18)
  1. PACERONE [Concomitant]
     Dosage: UNK, QD
  2. SODIUM BICARBONATE [Concomitant]
     Dosage: 650 MG, BID
     Route: 048
  3. ASPIRIN [Concomitant]
     Dosage: 81 MG, QD
     Route: 048
  4. LEVOTHYROXINE SODIUM [Concomitant]
     Indication: THYROID DISORDER
     Dosage: 25 UG, EACH EVENING
     Route: 048
  5. GLIMEPIRIDE [Concomitant]
     Indication: TYPE 2 DIABETES MELLITUS
     Dosage: 1 MG, EACH MORNING
     Route: 048
  6. WARFARIN SODIUM [Concomitant]
     Dosage: 7 MG, QD
     Route: 048
  7. TORSEMIDE [Concomitant]
     Dosage: 20 MG, EACH MORNING
     Route: 048
  8. DILTIAZEM [Concomitant]
     Dosage: 180 MG, QD
     Route: 048
  9. PRAVASTATIN [Concomitant]
     Dosage: 80 MG, QD
     Route: 048
  10. BYETTA [Suspect]
     Indication: TYPE 2 DIABETES MELLITUS
     Dosage: 5 UG, BID
     Route: 058
  11. DIOVAN [Concomitant]
     Indication: BLOOD PRESSURE
     Dosage: 80 MG, BID
     Route: 048
  12. ALLOPURINOL [Concomitant]
     Indication: GOUT
     Dosage: 100 MG, QD
     Route: 048
  13. ANDROGEL [Concomitant]
     Dosage: 5 G, UNK
  14. TIKOSYN [Concomitant]
     Dosage: 125 UG, BID
     Route: 048
  15. BYETTA [Suspect]
     Dosage: 10 UG, BID
     Route: 058
  16. CALCITRIOL [Concomitant]
     Dosage: 0.25 UG, QD
     Route: 048
  17. HYDRALAZINE HCL [Concomitant]
     Indication: BLOOD PRESSURE
     Dosage: 50 MG, TID
     Route: 048
  18. PULMICORT [Concomitant]
     Dosage: 180 MG, BID
     Route: 055

REACTIONS (18)
  - HOSPITALISATION [None]
  - ABDOMINAL PAIN UPPER [None]
  - HEART RATE INCREASED [None]
  - INJECTION SITE HAEMORRHAGE [None]
  - INJECTION SITE PAIN [None]
  - MYOCARDIAL INFARCTION [None]
  - FEELING ABNORMAL [None]
  - CARDIAC FAILURE CONGESTIVE [None]
  - PAIN IN EXTREMITY [None]
  - INJECTION SITE HAEMATOMA [None]
  - ATRIAL FIBRILLATION [None]
  - GOUT [None]
  - BLOOD TESTOSTERONE DECREASED [None]
  - HEADACHE [None]
  - PAIN [None]
  - RENAL IMPAIRMENT [None]
  - GLYCOSYLATED HAEMOGLOBIN INCREASED [None]
  - HYPERTENSION [None]
